FAERS Safety Report 21973662 (Version 2)
Quarter: 2023Q1

REPORT INFORMATION
  Report Type: Spontaneous
  Country: NO (occurrence: NO)
  Receive Date: 20230209
  Receipt Date: 20230329
  Transmission Date: 20230418
  Serious: Yes (Hospitalization, Other)
  Sender: FDA-Public Use
  Company Number: NO-SA-SAC20230207000131

PATIENT
  Age: 65 Year

DRUGS (1)
  1. MABCAMPATH [Suspect]
     Active Substance: ALEMTUZUMAB
     Indication: Large granular lymphocytosis
     Dosage: 36 DF (VIALS)
     Route: 065

REACTIONS (4)
  - Thrombocytopenia [Recovered/Resolved]
  - COVID-19 [Recovered/Resolved]
  - Fatigue [Recovered/Resolved]
  - Off label use [Unknown]

NARRATIVE: CASE EVENT DATE: 20220101
